FAERS Safety Report 5802548-1 (Version None)
Quarter: 2008Q3

REPORT INFORMATION
  Report Type: 
  Country: None (occurrence: None)
  Receive Date: 20080708
  Receipt Date: 20080623
  Transmission Date: 20090109
  Serious: Yes (Other)
  Sender: FDA-Public Use
  Company Number: US-BAYER-200810603NA

PATIENT
  Age: 49 Year
  Sex: Female

DRUGS (4)
  1. BETASERON [Suspect]
     Indication: RELAPSING-REMITTING MULTIPLE SCLEROSIS
     Route: 058
     Dates: start: 19930101
  2. BETASERON [Suspect]
     Route: 058
     Dates: end: 20070801
  3. BETASERON [Suspect]
     Dosage: TOTAL DAILY DOSE: 8 MIU
     Route: 058
     Dates: start: 20080501
  4. TYSABRI [Concomitant]
     Dates: start: 20070101, end: 20080401

REACTIONS (1)
  - THYROID CANCER [None]
